FAERS Safety Report 23592706 (Version 1)
Quarter: 2024Q1

REPORT INFORMATION
  Report Type: Spontaneous
  Country: US (occurrence: None)
  Receive Date: 20240303
  Receipt Date: 20240303
  Transmission Date: 20240410
  Serious: Yes (Other)
  Sender: FDA-Public Use
  Company Number: None

PATIENT
  Age: 52 Year
  Sex: Female
  Weight: 94.5 kg

DRUGS (1)
  1. QULIPTA [Suspect]
     Active Substance: ATOGEPANT
     Indication: Migraine prophylaxis
     Dosage: OTHER QUANTITY : 1 TABLET(S);?FREQUENCY : AT BEDTIME;?
     Dates: start: 20240302, end: 20240303

REACTIONS (6)
  - Lip swelling [None]
  - Paraesthesia oral [None]
  - Swelling of eyelid [None]
  - Plicated tongue [None]
  - Tongue discomfort [None]
  - Throat irritation [None]

NARRATIVE: CASE EVENT DATE: 20240303
